FAERS Safety Report 19931933 (Version 1)
Quarter: 2021Q4

REPORT INFORMATION
  Report Type: Spontaneous
  Country: CN (occurrence: CN)
  Receive Date: 20211007
  Receipt Date: 20211007
  Transmission Date: 20220303
  Serious: Yes (Other)
  Sender: FDA-Public Use
  Company Number: CN-BAXTER-2021BAX024243

PATIENT
  Age: 67 Year
  Sex: Female
  Weight: 54.9 kg

DRUGS (9)
  1. CYCLOPHOSPHAMIDE [Suspect]
     Active Substance: CYCLOPHOSPHAMIDE
     Indication: Plasma cell leukaemia
     Dosage: DILUTED WITH 250ML NS
     Route: 041
     Dates: start: 20190304, end: 20190304
  2. BORTEZOMIB [Suspect]
     Active Substance: BORTEZOMIB
     Indication: Plasma cell leukaemia
     Dosage: DILUTED WITH 1ML WATER FOR INJECTION
     Route: 058
     Dates: start: 20190304, end: 20190304
  3. VINDESINE [Suspect]
     Active Substance: VINDESINE
     Indication: Plasma cell leukaemia
     Dosage: DILUTED WITH 40ML NS
     Route: 042
     Dates: start: 20190304, end: 20190304
  4. THALIDOMIDE [Suspect]
     Active Substance: THALIDOMIDE
     Indication: Antiangiogenic therapy
     Dosage: TABLET
     Route: 048
     Dates: start: 20190208, end: 20190304
  5. EPIRUBICIN HYDROCHLORIDE [Suspect]
     Active Substance: EPIRUBICIN HYDROCHLORIDE
     Indication: Plasma cell leukaemia
     Dosage: DILUTED WITH 40ML WATER FOR INJECTION
     Route: 042
     Dates: start: 20190304, end: 20190304
  6. WATER [Suspect]
     Active Substance: WATER
     Indication: Medication dilution
     Dosage: USE AS DILUENT FOR EPIRUBICIN
     Route: 042
     Dates: start: 20190304, end: 20190304
  7. WATER [Suspect]
     Active Substance: WATER
     Indication: Medication dilution
     Dosage: USE AS DILUENT FOR BORTEZOMIB
     Route: 058
     Dates: start: 20190304, end: 20190304
  8. SODIUM CHLORIDE [Suspect]
     Active Substance: SODIUM CHLORIDE
     Indication: Medication dilution
     Dosage: USE AS DILUENT FOR VINDESINE
     Route: 042
     Dates: start: 20190304, end: 20190304
  9. SODIUM CHLORIDE [Suspect]
     Active Substance: SODIUM CHLORIDE
     Indication: Medication dilution
     Route: 041
     Dates: start: 20190304, end: 20190304

REACTIONS (2)
  - Chest discomfort [Recovering/Resolving]
  - Electrocardiogram QT prolonged [Recovering/Resolving]

NARRATIVE: CASE EVENT DATE: 20190304
